FAERS Safety Report 5862370-7 (Version None)
Quarter: 2008Q3

REPORT INFORMATION
  Report Type: 
  Country: None (occurrence: None)
  Receive Date: 20080818
  Receipt Date: 20080529
  Transmission Date: 20090109
  Serious: No
  Sender: FDA-Public Use
  Company Number: WAES 0805USA06188

PATIENT
  Age: 60 Year
  Sex: Female

DRUGS (4)
  1. JANUVIA [Suspect]
     Indication: DIABETES MELLITUS
     Dosage: 100 MG DAILY PO
     Route: 048
     Dates: start: 20070101, end: 20080515
  2. JANUVIA [Suspect]
     Indication: DIABETES MELLITUS
     Dosage: 100 MG DAILY PO
     Route: 048
     Dates: start: 20080522, end: 20080524
  3. ACTOPLUS MET [Concomitant]
  4. GLIPIZIDE [Concomitant]

REACTIONS (3)
  - HEADACHE [None]
  - MIGRAINE [None]
  - RHINORRHOEA [None]
